FAERS Safety Report 5176622-X (Version None)
Quarter: 2006Q4

REPORT INFORMATION
  Report Type: 
  Country: None (occurrence: None)
  Receive Date: 20061207
  Receipt Date: 20061129
  Transmission Date: 20070319
  Serious: Yes (Life-Threatening, Disabling, Other)
  Sender: FDA-Public Use
  Company Number: 2006135174

PATIENT
  Age: 64 Year
  Sex: Male
  Weight: 76 kg

DRUGS (2)
  1. TRANEXAMIC ACID (IV) (TRANEXAMIC ACID) [Suspect]
     Indication: POST PROCEDURAL HAEMORRHAGE
     Dosage: (1000 MG), INTRAVENOUS
     Route: 042
     Dates: start: 20061025, end: 20061025
  2. VOLTAREN [Concomitant]

REACTIONS (7)
  - ARTHRALGIA [None]
  - BRADYCARDIA [None]
  - DIZZINESS [None]
  - INCORRECT DRUG ADMINISTRATION RATE [None]
  - MALAISE [None]
  - SHOCK [None]
  - THROMBOPHLEBITIS [None]
